FAERS Safety Report 9305357 (Version 1)
Quarter: 2013Q2

REPORT INFORMATION
  Report Type: Spontaneous
  Country: ES (occurrence: ES)
  Receive Date: 20130523
  Receipt Date: 20130523
  Transmission Date: 20140414
  Serious: Yes (Other)
  Sender: FDA-Public Use
  Company Number: ES-PFIZER INC-2013157524

PATIENT
  Age: 38 Year
  Sex: Male

DRUGS (2)
  1. SUTENT [Suspect]
     Indication: CLEAR CELL RENAL CELL CARCINOMA
     Dosage: 50 MG, 1X/DAY
     Route: 048
     Dates: start: 20120110, end: 20130215
  2. ALLOPURINOL [Concomitant]
     Dosage: 150 MG, 1X/DAY
     Route: 048

REACTIONS (1)
  - Acquired haemophilia [Recovered/Resolved with Sequelae]
